FAERS Safety Report 4762771-4 (Version None)
Quarter: 2005Q3

REPORT INFORMATION
  Report Type: 
  Country: None (occurrence: None)
  Receive Date: 20050907
  Receipt Date: 20050719
  Transmission Date: 20060218
  Serious: Yes (Disabling)
  Sender: FDA-Public Use
  Company Number: US-MERCK-0507USA02755

PATIENT
  Sex: Female

DRUGS (1)
  1. VIOXX [Suspect]
     Route: 048

REACTIONS (5)
  - ANXIETY [None]
  - EMOTIONAL DISTRESS [None]
  - FEAR [None]
  - MYOCARDIAL INFARCTION [None]
  - POLYTRAUMATISM [None]
